FAERS Safety Report 7700961-9 (Version None)
Quarter: 2011Q3

REPORT INFORMATION
  Report Type: 
  Country: None (occurrence: None)
  Receive Date: 20110822
  Receipt Date: 20110812
  Transmission Date: 20111222
  Serious: Yes (Hospitalization)
  Sender: FDA-Public Use
  Company Number: US-ROCHE-797388

PATIENT
  Sex: Male
  Weight: 67.1 kg

DRUGS (5)
  1. ACTEMRA [Suspect]
     Route: 042
     Dates: start: 20110516
  2. ACTEMRA [Suspect]
     Route: 042
     Dates: start: 20110720
  3. ACTEMRA [Suspect]
     Route: 042
     Dates: start: 20110620
  4. ACTEMRA [Suspect]
     Dosage: FORM INFUSION, START DATE APPROX JUNE OR JULY 2010
     Route: 042
     Dates: start: 20100601
  5. ACTEMRA [Suspect]
     Dosage: MOST RECENT ADMINISTRATION 20 JULY 2011, 8 MG/KG
     Route: 042
     Dates: start: 20110415

REACTIONS (2)
  - CELLULITIS [None]
  - DERMATITIS [None]
